FAERS Safety Report 10464757 (Version 2)
Quarter: 2014Q3

REPORT INFORMATION
  Report Type: Report from Study
  Country: GB (occurrence: GB)
  Receive Date: 20140919
  Receipt Date: 20140922
  Transmission Date: 20150326
  Serious: Yes (Other)
  Sender: FDA-Public Use
  Company Number: GB-009507513-1409GBR006465

PATIENT
  Age: 75 Year
  Sex: Female

DRUGS (5)
  1. THALIDOMIDE [Suspect]
     Active Substance: THALIDOMIDE
     Indication: PLASMA CELL MYELOMA
     Dosage: TOTAL DOSE: 21000 MG, (NO CYCLES: 8), REGIME CTDA
     Route: 048
     Dates: start: 20120917, end: 20130505
  2. VORINOSTAT [Suspect]
     Active Substance: VORINOSTAT
     Indication: PLASMA CELL MYELOMA
     Dosage: TOTAL DOSE: 4200 MG (NO CYCLES: 1), REGIME MAINTENANCE
     Route: 048
     Dates: start: 20130614, end: 20130711
  3. LENALIDOMIDE [Suspect]
     Active Substance: LENALIDOMIDE
     Indication: PLASMA CELL MYELOMA
     Dosage: 300 MG, REGIME MAINTENANCE, (NO CYCLES: 2)
     Route: 048
     Dates: start: 20130614, end: 20130812
  4. CYCLOPHOSPHAMIDE. [Suspect]
     Active Substance: CYCLOPHOSPHAMIDE
     Indication: PLASMA CELL MYELOMA
     Dosage: TOTAL DOSE: 13000 MG, NO CYCLES: 8, REGIME CTDA
     Route: 048
     Dates: start: 20120917, end: 20130505
  5. DEXAMETHASONE. [Suspect]
     Active Substance: DEXAMETHASONE
     Indication: PLASMA CELL MYELOMA
     Dosage: TOTAL DOSE:1280 MG , (NO CYCLES: 8), REGIME CTDA
     Route: 048
     Dates: start: 20120917, end: 20130505

REACTIONS (1)
  - Ovarian epithelial cancer stage III [Unknown]

NARRATIVE: CASE EVENT DATE: 20140415
